FAERS Safety Report 6845193-1 (Version None)
Quarter: 2010Q3

REPORT INFORMATION
  Report Type: 
  Country: None (occurrence: None)
  Receive Date: 20100715
  Receipt Date: 20070816
  Transmission Date: 20110219
  Serious: No
  Sender: FDA-Public Use
  Company Number: US-PFIZER INC-2007068980

PATIENT
  Sex: Female
  Weight: 85 kg

DRUGS (12)
  1. CHANTIX [Suspect]
     Indication: SMOKING CESSATION THERAPY
     Dates: start: 20070701
  2. VALSARTAN [Concomitant]
  3. LOPRESSOR [Concomitant]
  4. ZOCOR [Concomitant]
  5. ALBUTEROL [Concomitant]
     Route: 055
  6. SPIRIVA [Concomitant]
  7. ACIPHEX [Concomitant]
  8. ADVAIR DISKUS 100/50 [Concomitant]
  9. DARVOCET [Concomitant]
  10. NEURONTIN [Concomitant]
  11. ALL OTHER THERAPEUTIC PRODUCTS [Concomitant]
     Indication: DIABETIC ULCER
  12. SITAGLIPTIN [Concomitant]

REACTIONS (4)
  - BLOOD GLUCOSE INCREASED [None]
  - DRUG INEFFECTIVE [None]
  - EMPHYSEMA [None]
  - GLYCOSYLATED HAEMOGLOBIN INCREASED [None]
